FAERS Safety Report 6498518-3 (Version None)
Quarter: 2009Q4

REPORT INFORMATION
  Report Type: 
  Country: None (occurrence: None)
  Receive Date: 20091215
  Receipt Date: 20091211
  Transmission Date: 20100525
  Serious: Yes (Other)
  Sender: FDA-Public Use
  Company Number: US-MERCK-0912USA00726

PATIENT
  Sex: Male

DRUGS (1)
  1. INVANZ [Suspect]
     Indication: INFECTION
     Route: 065

REACTIONS (2)
  - CRYING [None]
  - ENCEPHALOPATHY [None]
